FAERS Safety Report 23428875 (Version 1)
Quarter: 2024Q1

REPORT INFORMATION
  Report Type: Spontaneous
  Country: CN (occurrence: CN)
  Receive Date: 20240122
  Receipt Date: 20240122
  Transmission Date: 20240410
  Serious: Yes (Hospitalization)
  Sender: FDA-Public Use
  Company Number: CN-PFIZER INC-PV202400006094

PATIENT
  Age: 75 Year
  Sex: Male

DRUGS (4)
  1. TYGACIL [Suspect]
     Active Substance: TIGECYCLINE
     Indication: Pneumonia
     Dosage: 50 MG, 2X/DAY
     Route: 041
     Dates: start: 20231221, end: 20231225
  2. TYGACIL [Suspect]
     Active Substance: TIGECYCLINE
     Indication: Dementia Alzheimer^s type
     Dosage: 100 MG, 2X/DAY
     Route: 041
     Dates: start: 20231226, end: 20240105
  3. VORICONAZOLE [Suspect]
     Active Substance: VORICONAZOLE
     Indication: Pneumonia
     Dosage: 0.2 G, 2X/DAY
     Route: 041
     Dates: start: 20231221, end: 20231225
  4. VORICONAZOLE [Suspect]
     Active Substance: VORICONAZOLE
     Indication: Dementia Alzheimer^s type

REACTIONS (8)
  - Alanine aminotransferase increased [Recovered/Resolved with Sequelae]
  - Aspartate aminotransferase increased [Recovered/Resolved with Sequelae]
  - Blood alkaline phosphatase increased [Recovered/Resolved with Sequelae]
  - Drug-induced liver injury [Unknown]
  - Hepatocellular injury [Unknown]
  - Asthenia [Unknown]
  - Yellow skin [Unknown]
  - Off label use [Unknown]

NARRATIVE: CASE EVENT DATE: 20231224
